FAERS Safety Report 6869072-9 (Version None)
Quarter: 2010Q3

REPORT INFORMATION
  Report Type: 
  Country: None (occurrence: None)
  Receive Date: 20100722
  Receipt Date: 20080704
  Transmission Date: 20110219
  Serious: No
  Sender: FDA-Public Use
  Company Number: US-PFIZER INC-2008056998

PATIENT
  Sex: Female
  Weight: 56.818 kg

DRUGS (5)
  1. CHANTIX [Suspect]
     Indication: SMOKING CESSATION THERAPY
     Dates: start: 20070601
  2. WELLBUTRIN [Concomitant]
     Dates: end: 20080501
  3. ACIPHEX [Concomitant]
     Dates: end: 20080601
  4. IBUPROFEN [Concomitant]
  5. TENIDAP SODIUM [Concomitant]

REACTIONS (2)
  - INSOMNIA [None]
  - NIGHTMARE [None]
